FAERS Safety Report 17936903 (Version 2)
Quarter: 2020Q2

REPORT INFORMATION
  Report Type: Spontaneous
  Country: US (occurrence: US)
  Receive Date: 20200624
  Receipt Date: 20200624
  Transmission Date: 20200714
  Serious: No
  Sender: FDA-Public Use
  Company Number: US-GALDERMA-US2020024841

PATIENT
  Sex: Female

DRUGS (3)
  1. CERAVE ULTRA LIGHT NIGHTTIME MOISTURIZER [Concomitant]
     Indication: PRODUCT USED FOR UNKNOWN INDICATION
     Route: 061
  2. CERAVE ULTRA LIGHT DAYTIME MOISTURIZER [Concomitant]
     Indication: PRODUCT USED FOR UNKNOWN INDICATION
     Route: 061
  3. DIFFERIN GEL [Suspect]
     Active Substance: ADAPALENE
     Indication: PRODUCT USED FOR UNKNOWN INDICATION
     Dosage: 0.1%
     Route: 061
     Dates: start: 2020

REACTIONS (3)
  - Periorbital pain [Unknown]
  - Periorbital swelling [Unknown]
  - Erythema [Unknown]

NARRATIVE: CASE EVENT DATE: 2020
